FAERS Safety Report 24130159 (Version 1)
Quarter: 2024Q3

REPORT INFORMATION
  Report Type: Spontaneous
  Country: CN (occurrence: CN)
  Receive Date: 20240724
  Receipt Date: 20240724
  Transmission Date: 20241016
  Serious: Yes (Other)
  Sender: CHEPLAPHARM
  Company Number: CN-CHEPLA-2024009204

PATIENT
  Age: 65 Year
  Sex: Male

DRUGS (1)
  1. CAPECITABINE [Suspect]
     Active Substance: CAPECITABINE
     Indication: Colon cancer
     Dosage: APPROVAL NO. GYZZ H20073024; 1.5 G [TWO TIMES IN 14 DAYS]; IT MAY BE THAT THE REPORTER MADE A MIS...
     Route: 048
     Dates: start: 20240410, end: 20240424

REACTIONS (4)
  - Palmar-plantar erythrodysaesthesia syndrome [Recovering/Resolving]
  - Weight decreased [Recovering/Resolving]
  - Diarrhoea [Recovering/Resolving]
  - Malnutrition [Recovering/Resolving]

NARRATIVE: CASE EVENT DATE: 20240424
